FAERS Safety Report 7553226-2 (Version None)
Quarter: 2011Q2

REPORT INFORMATION
  Report Type: 
  Country: None (occurrence: None)
  Receive Date: 20110617
  Receipt Date: 20110609
  Transmission Date: 20111010
  Serious: Yes (Hospitalization)
  Sender: FDA-Public Use
  Company Number: US-BIOGENIDEC-2011BI021330

PATIENT
  Age: 68 Year
  Sex: Female

DRUGS (1)
  1. AVONEX [Suspect]
     Indication: MULTIPLE SCLEROSIS
     Route: 030
     Dates: start: 19980612

REACTIONS (5)
  - PYREXIA [None]
  - GASTROINTESTINAL VIRAL INFECTION [None]
  - DYSSTASIA [None]
  - APHAGIA [None]
  - COMMUNICATION DISORDER [None]
